FAERS Safety Report 6646594-7 (Version None)
Quarter: 2010Q1

REPORT INFORMATION
  Report Type: 
  Country: None (occurrence: None)
  Receive Date: 20100323
  Receipt Date: 20100316
  Transmission Date: 20100710
  Serious: Yes (Other)
  Sender: FDA-Public Use
  Company Number: US-JNJCH-2010006669

PATIENT
  Age: 33 Year
  Sex: Male
  Weight: 65.8 kg

DRUGS (1)
  1. SUDAFED PE SEVERE COLD CAPLET [Suspect]
     Indication: NASAL CONGESTION
     Dosage: TEXT:2 CAPLETS ONCE
     Route: 048
     Dates: start: 20100314, end: 20100314

REACTIONS (3)
  - EUPHORIC MOOD [None]
  - INSOMNIA [None]
  - MALAISE [None]
